FAERS Safety Report 9050977 (Version 2)
Quarter: 2013Q1

REPORT INFORMATION
  Report Type: Spontaneous
  Country: FR (occurrence: FR)
  Receive Date: 20130205
  Receipt Date: 20130226
  Transmission Date: 20140127
  Serious: Yes (Hospitalization)
  Sender: FDA-Public Use
  Company Number: FR-PFIZER INC-2013041500

PATIENT
  Age: 86 Year
  Sex: Female

DRUGS (13)
  1. TAZOCILLINE [Suspect]
     Dosage: 4 G, 3X/DAY
     Route: 041
     Dates: start: 20121221, end: 20121226
  2. TIENAM [Suspect]
     Dosage: 1 G, 4X/DAY
     Route: 041
     Dates: start: 20121225, end: 20121226
  3. TOPALGIC [Suspect]
     Dosage: UNK
     Route: 048
     Dates: start: 20121221, end: 20121227
  4. SPASFON [Suspect]
     Dosage: UNK
     Route: 048
     Dates: start: 20121221, end: 20121227
  5. DOLIPRANE [Suspect]
     Dosage: UNK
     Route: 048
     Dates: start: 20121221, end: 20121227
  6. CARDENSIEL [Concomitant]
  7. KARDEGIC [Concomitant]
  8. INEXIUM [Concomitant]
  9. LEVOTHYROX [Concomitant]
  10. PRAVASTATIN [Concomitant]
  11. LANTUS [Concomitant]
  12. TRIATEC [Concomitant]
     Dosage: UNK
     Dates: start: 20121126
  13. LASILIX [Concomitant]
     Indication: CARDIAC FAILURE
     Dosage: UNK
     Route: 042
     Dates: start: 20121225

REACTIONS (1)
  - Acute generalised exanthematous pustulosis [Recovered/Resolved]
